FAERS Safety Report 18013164 (Version 1)
Quarter: 2020Q3

REPORT INFORMATION
  Report Type: Spontaneous
  Country: US (occurrence: US)
  Receive Date: 20200713
  Receipt Date: 20200713
  Transmission Date: 20201103
  Serious: No
  Sender: FDA-Public Use
  Company Number: US-PFIZER INC-2020257044

PATIENT
  Age: 73 Year
  Sex: Male

DRUGS (3)
  1. INLYTA [Suspect]
     Active Substance: AXITINIB
     Dosage: 22 MG, DAILY
     Dates: start: 20200630
  2. INLYTA [Suspect]
     Active Substance: AXITINIB
     Dosage: 5 MG
     Dates: start: 20200325
  3. INLYTA [Suspect]
     Active Substance: AXITINIB
     Dosage: 11 MG, 2X/DAY
     Dates: start: 20200708

REACTIONS (5)
  - Headache [Unknown]
  - Aphonia [Unknown]
  - Prescribed overdose [Unknown]
  - Pain in extremity [Unknown]
  - Diarrhoea [Unknown]

NARRATIVE: CASE EVENT DATE: 20200630
